FAERS Safety Report 9032173 (Version 3)
Quarter: 2013Q1

REPORT INFORMATION
  Report Type: Spontaneous
  Country: US (occurrence: US)
  Receive Date: 20130122
  Receipt Date: 20130311
  Transmission Date: 20140127
  Serious: Yes (Hospitalization, Other)
  Sender: FDA-Public Use
  Company Number: US-ASTELLAS-2013US000586

PATIENT
  Age: 60 None
  Sex: Male
  Weight: 110 kg

DRUGS (5)
  1. PROGRAF [Suspect]
     Indication: LUNG TRANSPLANT
     Dosage: 1 MG, BID
     Route: 048
     Dates: start: 20090928
  2. CELLCEPT                           /01275102/ [Concomitant]
     Indication: LUNG TRANSPLANT
     Dosage: 1000 MG, BID
     Route: 048
  3. ZOCOR [Concomitant]
     Indication: PRODUCT USED FOR UNKNOWN INDICATION
     Dosage: UNK
     Route: 065
  4. INSULIN                            /00646001/ [Concomitant]
     Indication: PRODUCT USED FOR UNKNOWN INDICATION
     Dosage: UNK
     Route: 065
  5. PREDNISONE [Concomitant]
     Indication: PRODUCT USED FOR UNKNOWN INDICATION
     Dosage: UNK
     Route: 065

REACTIONS (21)
  - Off label use [Unknown]
  - Atrioventricular block complete [Unknown]
  - Bronchostenosis [Unknown]
  - Obliterative bronchiolitis [Unknown]
  - Aortic aneurysm [Unknown]
  - Coronary artery disease [Unknown]
  - Lung transplant rejection [Unknown]
  - Renal failure chronic [Unknown]
  - Atrial flutter [Recovered/Resolved]
  - Atrial fibrillation [Recovered/Resolved]
  - Renal failure acute [Recovered/Resolved]
  - Cardiac failure acute [Unknown]
  - Hypertension [Unknown]
  - Cardiac failure congestive [Unknown]
  - Acidosis [Recovered/Resolved]
  - Haemoglobin abnormal [Unknown]
  - Hyperlipidaemia [Unknown]
  - Hypercholesterolaemia [Unknown]
  - Rash pustular [Recovering/Resolving]
  - Polyneuropathy [Unknown]
  - Aortic stenosis [Recovered/Resolved]
